FAERS Safety Report 7671830-8 (Version None)
Quarter: 2011Q3

REPORT INFORMATION
  Report Type: 
  Country: None (occurrence: None)
  Receive Date: 20110809
  Receipt Date: 20110801
  Transmission Date: 20111222
  Serious: Yes (Death, Other)
  Sender: FDA-Public Use
  Company Number: US-BAYER-200940491NA

PATIENT
  Age: 71 Year
  Sex: Male
  Weight: 77.098 kg

DRUGS (16)
  1. COREG [Concomitant]
     Dosage: 25 MG, UNK
     Route: 048
  2. LIDOCAINE [Concomitant]
     Dosage: UNK
     Route: 042
     Dates: start: 20071008
  3. HEPARIN [Concomitant]
     Dosage: 10000 U, UNK
     Route: 042
     Dates: start: 20071009
  4. DOBUTAMINE HCL [Concomitant]
     Dosage: UNK
     Route: 042
     Dates: start: 20071008
  5. LORAZEPAM [Concomitant]
     Dosage: 2 MG, UNK
     Route: 048
  6. METFORMIN HCL [Concomitant]
     Dosage: 1000 MG, UNK
     Route: 048
     Dates: start: 20051130
  7. TRASYLOL [Suspect]
     Indication: CORONARY ARTERY BYPASS
     Route: 042
     Dates: start: 20070910
  8. LOVASTATIN [Concomitant]
     Dosage: 20 MG, UNK
     Dates: start: 20070123
  9. PAPAVERINE [Concomitant]
     Dosage: 30 MG, UNK
     Route: 042
     Dates: start: 20071009
  10. EPINEPHRINE [Concomitant]
     Dosage: 1 MG, UNK
     Route: 042
     Dates: start: 20071009
  11. VERSED [Concomitant]
     Dosage: UNK
     Route: 042
     Dates: start: 20071008
  12. LISINOPRIL AND HYDROCHLOROTHIAZIDE [Concomitant]
     Dosage: 20/25 MG
     Route: 048
     Dates: start: 20070123
  13. CILOSTAZOL [Concomitant]
     Dosage: 100 MG, UNK
     Route: 048
  14. GLIPIZIDE [Concomitant]
     Dosage: 10 MG, UNK
     Route: 048
     Dates: start: 20051130
  15. AVANDIA [Concomitant]
     Dosage: 4 MG, UNK
     Route: 048
  16. HEPARIN [Concomitant]
     Dosage: UNK
     Route: 042
     Dates: start: 20071008

REACTIONS (13)
  - RENAL IMPAIRMENT [None]
  - EMOTIONAL DISTRESS [None]
  - RENAL FAILURE [None]
  - INJURY [None]
  - ANXIETY [None]
  - DEATH [None]
  - MULTI-ORGAN FAILURE [None]
  - RENAL INJURY [None]
  - STRESS [None]
  - UNEVALUABLE EVENT [None]
  - ANHEDONIA [None]
  - PAIN [None]
  - FEAR [None]
